FAERS Safety Report 22361797 (Version 2)
Quarter: 2023Q2

REPORT INFORMATION
  Report Type: Spontaneous
  Country: DE (occurrence: DE)
  Receive Date: 20230524
  Receipt Date: 20230606
  Transmission Date: 20230721
  Serious: Yes (Hospitalization, Congenital Anomaly, Other)
  Sender: FDA-Public Use
  Company Number: None

PATIENT
  Age: 45 Week
  Sex: Male
  Weight: 2.56 kg

DRUGS (4)
  1. LEVETIRACETAM [Suspect]
     Active Substance: LEVETIRACETAM
     Indication: Epilepsy
     Dosage: 3000 [MG/D ]/ INITIAL 2X750MG DAILY, INCREASED TO 2X1500MG DAILY
     Route: 064
     Dates: start: 20220203, end: 20221008
  2. LEVOTHYROXINE SODIUM [Concomitant]
     Active Substance: LEVOTHYROXINE SODIUM
     Indication: Hypothyroidism
     Dosage: 50 [?G/D ]
     Route: 064
     Dates: start: 20220203, end: 20221008
  3. AMOXICILLIN [Concomitant]
     Active Substance: AMOXICILLIN
     Indication: Infection prophylaxis
     Dosage: 2000 [MG/D (2X1000) ]
     Route: 064
  4. MINERALS\VITAMINS [Concomitant]
     Active Substance: MINERALS\VITAMINS
     Indication: Prophylaxis of neural tube defect
     Dosage: UNK
     Dates: start: 20220903, end: 20220912

REACTIONS (7)
  - Urethral atresia [Not Recovered/Not Resolved]
  - Foetal megacystis [Recovered/Resolved]
  - Vesicoureteric reflux [Not Recovered/Not Resolved]
  - Pericardial effusion [Unknown]
  - Cardiac hypertrophy [Unknown]
  - Maternal exposure during pregnancy [Unknown]
  - Maternal exposure before pregnancy [Unknown]

NARRATIVE: CASE EVENT DATE: 20220203
